FAERS Safety Report 9310358 (Version 1)
Quarter: 2013Q2

REPORT INFORMATION
  Report Type: Spontaneous
  Country: AU (occurrence: AU)
  Receive Date: 20130527
  Receipt Date: 20130527
  Transmission Date: 20140414
  Serious: Yes (Other)
  Sender: FDA-Public Use
  Company Number: AU-PFIZER INC-2013161155

PATIENT
  Sex: Male

DRUGS (2)
  1. LYRICA [Suspect]
     Indication: COSTOCHONDRITIS
     Dosage: 75 MG, 2X/DAY
  2. LYRICA [Suspect]
     Dosage: 150 MG, 2X/DAY

REACTIONS (7)
  - Chest pain [Unknown]
  - Dyspnoea [Unknown]
  - Heart rate decreased [Unknown]
  - Drug ineffective [Unknown]
  - Off label use [Unknown]
  - Pain in extremity [Unknown]
  - Therapeutic response unexpected [Unknown]
